FAERS Safety Report 18502337 (Version 1)
Quarter: 2020Q4

REPORT INFORMATION
  Report Type: Other
  Country: US (occurrence: US)
  Receive Date: 20201113
  Receipt Date: 20201113
  Transmission Date: 20210114
  Serious: No
  Sender: FDA-Public Use
  Company Number: US-LEADIANT BIOSCIENCES INC-2020STPI000303

PATIENT
  Sex: Female

DRUGS (6)
  1. PEPCID AC [Concomitant]
     Active Substance: FAMOTIDINE
  2. CYSTARAN [Suspect]
     Active Substance: CYSTEAMINE HYDROCHLORIDE
     Indication: CORNEAL DEPOSITS
     Dosage: AS NEEDED WHILE AWAKE
     Route: 047
     Dates: start: 20181011
  3. CELLCEPT [Concomitant]
     Active Substance: MYCOPHENOLATE MOFETIL\MYCOPHENOLATE MOFETIL HYDROCHLORIDE
  4. GLIPIZIDE. [Concomitant]
     Active Substance: GLIPIZIDE
  5. PROCYSBI [Concomitant]
     Active Substance: CYSTEAMINE BITARTRATE
  6. PROGRAF [Concomitant]
     Active Substance: TACROLIMUS

REACTIONS (1)
  - Eye pain [Not Recovered/Not Resolved]
